FAERS Safety Report 7677798-2 (Version None)
Quarter: 2011Q3

REPORT INFORMATION
  Report Type: 
  Country: None (occurrence: None)
  Receive Date: 20110808
  Receipt Date: 20110725
  Transmission Date: 20111222
  Serious: Yes (Hospitalization)
  Sender: FDA-Public Use
  Company Number: ES-ACCORD-010169

PATIENT
  Age: 30 Year
  Sex: Male

DRUGS (6)
  1. MYCOPHENOLATE MOFETIL [Suspect]
     Indication: IMMUNOSUPPRESSION
     Dosage: 2.00-G /ORAL
     Route: 048
  2. VALGANCICLOVIR HCL [Concomitant]
  3. TACROLIMUS [Suspect]
     Indication: IMMUNOSUPPRESSION
  4. PREDNISONE [Suspect]
     Dosage: 1.00-G /INTRAVENOUS (NOT OTHERWISE SPECIFIED)
     Route: 042
  5. THYMOGLOBULIN(THYMOGLOBULIN) [Concomitant]
  6. TRIMETHOPRIM + SULFAMETHOXAZOLE [Concomitant]

REACTIONS (5)
  - ANASTOMOTIC COMPLICATION [None]
  - TRANSPLANT REJECTION [None]
  - SIALOCELE [None]
  - THROMBOSIS [None]
  - ORAL CAVITY FISTULA [None]
